FAERS Safety Report 22376818 (Version 1)
Quarter: 2023Q2

REPORT INFORMATION
  Report Type: Spontaneous
  Country: JP (occurrence: JP)
  Receive Date: 20230528
  Receipt Date: 20230528
  Transmission Date: 20230721
  Serious: Yes (Other)
  Sender: FDA-Public Use
  Company Number: JP-TAKEDA-2023TJP006236

PATIENT
  Age: 4 Decade
  Sex: Female

DRUGS (1)
  1. LEUPLIN [Suspect]
     Active Substance: LEUPROLIDE ACETATE
     Indication: Breast cancer
     Route: 058
     Dates: start: 2021

REACTIONS (3)
  - Administration site induration [Not Recovered/Not Resolved]
  - Administration site abscess [Not Recovered/Not Resolved]
  - Hypersensitivity [Unknown]
